FAERS Safety Report 23287618 (Version 2)
Quarter: 2024Q1

REPORT INFORMATION
  Report Type: Spontaneous
  Country: IT (occurrence: IT)
  Receive Date: 20231212
  Receipt Date: 20240113
  Transmission Date: 20240409
  Serious: Yes (Hospitalization, Other)
  Sender: FDA-Public Use
  Company Number: IT-SCIEGENP-2023SCLIT00742

PATIENT
  Age: 55 Year
  Sex: Male

DRUGS (6)
  1. LAMOTRIGINE [Suspect]
     Active Substance: LAMOTRIGINE
     Indication: Schizophrenia
     Route: 065
  2. CLOZAPINE [Suspect]
     Active Substance: CLOZAPINE
     Indication: Schizophrenia
     Route: 065
  3. CLOZAPINE [Suspect]
     Active Substance: CLOZAPINE
     Route: 065
  4. ZUCLOPENTHIXOL [Suspect]
     Active Substance: ZUCLOPENTHIXOL
     Indication: Schizophrenia
     Route: 065
  5. HALOPERIDOL [Concomitant]
     Active Substance: HALOPERIDOL
     Indication: Schizophrenia
     Route: 065
  6. RISPERIDONE [Concomitant]
     Active Substance: RISPERIDONE

REACTIONS (3)
  - Hallucination, auditory [Recovering/Resolving]
  - Condition aggravated [Recovering/Resolving]
  - Delusion [Recovering/Resolving]
